FAERS Safety Report 10865279 (Version 1)
Quarter: 2015Q1

REPORT INFORMATION
  Report Type: Report from Study
  Country: US (occurrence: US)
  Receive Date: 20150224
  Receipt Date: 20150224
  Transmission Date: 20150721
  Serious: No
  Sender: FDA-Public Use
  Company Number: US-MYLANLABS-2014M1011544

PATIENT
  Age: 41 Year
  Sex: Female
  Weight: 117.91 kg

DRUGS (2)
  1. AMNESTEEM [Suspect]
     Active Substance: ISOTRETINOIN
     Indication: ACNE CYSTIC
     Dosage: 40 MG, BID
     Route: 048
     Dates: start: 20141003, end: 201411
  2. HYDROCHLOROTHIAZIDE/LISINOPRIL [Concomitant]
     Dosage: UNK

REACTIONS (2)
  - Sinusitis [Recovered/Resolved]
  - Epistaxis [Recovered/Resolved]

NARRATIVE: CASE EVENT DATE: 201411
